FAERS Safety Report 16573891 (Version 1)
Quarter: 2019Q3

REPORT INFORMATION
  Report Type: Spontaneous
  Country: DE (occurrence: DE)
  Receive Date: 20190715
  Receipt Date: 20190715
  Transmission Date: 20191004
  Serious: Yes (Hospitalization)
  Sender: FDA-Public Use
  Company Number: DE-SA-2019SA184876

PATIENT
  Age: 88 Year
  Sex: Female
  Weight: 80 kg

DRUGS (14)
  1. TORASEMID [Concomitant]
     Active Substance: TORSEMIDE
     Dosage: 30 MG, QD, 30 MG, 1-0-0-0,TABLET
     Route: 048
  2. MOVICOL [MACROGOL;POTASSIUM CHLORIDE;SODIUM BICARBONATE;SODIUM CHLORID [Concomitant]
     Dosage: 13.125 MG, BID, 13.125 MG, 1-1-0-0,SACHET
     Route: 048
  3. SULPIRIDE [Concomitant]
     Active Substance: SULPIRIDE
     Dosage: 200 MG, QD, 200 MG, 1-0-0-0, TABLET
     Route: 048
  4. AMITRIPTYLIN [Concomitant]
     Active Substance: AMITRIPTYLINE
     Dosage: 50 MG, QD, 50 MG, 0-0-1-0,TABLET
     Route: 048
  5. SPIOLTO RESPIMAT [Concomitant]
     Active Substance: OLODATEROL HYDROCHLORIDE\TIOTROPIUM BROMIDE MONOHYDRATE
     Dosage: UNK UG, QD,2.5|2.5 ?G, 1-0-0-0, METERED DOSE INHALER
     Route: 055
  6. ACETYLSALICYLIC ACID [Suspect]
     Active Substance: ASPIRIN
     Dosage: 100 MG, QD, 100 MG, 1-0-0-0, TABLET
     Route: 048
  7. CLOPIDOGREL BISULFATE. [Suspect]
     Active Substance: CLOPIDOGREL BISULFATE
     Dosage: 75 MG, QD, 75 MG, 1-0-0-0, TABLET
     Route: 048
  8. OMEPRAZOLE. [Concomitant]
     Active Substance: OMEPRAZOLE
     Dosage: 20 MG, BID, 20 MG, 1-0-1-0
     Route: 048
  9. TRANXILIUM [Concomitant]
     Active Substance: CLORAZEPATE DIPOTASSIUM
     Dosage: 10 MG, HS, 10 MG, 0-0-0-1, TABLET
     Route: 048
  10. METOPROLOL. [Concomitant]
     Active Substance: METOPROLOL
     Dosage: 23.75 MG, QD, 23.75 MG, 1-0-0-0,
     Route: 048
  11. KALINOR [POTASSIUM CHLORIDE] [Concomitant]
     Dosage: UNK G, QD, 1.56|2.5 G, 1-0-0-0,
     Route: 048
  12. XIPAMIDE [Concomitant]
     Active Substance: XIPAMIDE
     Dosage: 10 MG, QD, 10 MG, 1-0-0-0,
     Route: 048
  13. SIMVASTATIN. [Concomitant]
     Active Substance: SIMVASTATIN
     Dosage: 20 MG, QD, 20 MG, 0-0-1-0, TABLET
     Route: 048
  14. ELIQUIS [Suspect]
     Active Substance: APIXABAN
     Dosage: 2.5 MG, BID2.5 MG, 1-0-1-0, TABLET
     Route: 048

REACTIONS (6)
  - Loss of consciousness [Unknown]
  - Haematochezia [Unknown]
  - Product monitoring error [Unknown]
  - Syncope [Unknown]
  - Medication error [Unknown]
  - Fall [Unknown]
